FAERS Safety Report 8850795 (Version 1)
Quarter: 2012Q4

REPORT INFORMATION
  Report Type: 
  Country: BR (occurrence: BR)
  Receive Date: 20121019
  Receipt Date: 20121019
  Transmission Date: 20130627
  Serious: Yes (Other)
  Sender: FDA-Public Use
  Company Number: BR-BRISTOL-MYERS SQUIBB COMPANY-17029729

PATIENT
  Age: 64 Year
  Sex: Female
  Weight: 63 kg

DRUGS (6)
  1. ONGLYZA TABS 5 MG [Suspect]
     Dosage: 2 months ago started with 2tabs daily
     Route: 048
  2. METFORMIN HCL [Suspect]
  3. OMEPRAZOLE [Concomitant]
  4. SIMVASTATIN [Concomitant]
  5. HIGROTON [Concomitant]
  6. CAPTOPRIL [Concomitant]

REACTIONS (4)
  - Intervertebral disc protrusion [Unknown]
  - Carpal tunnel syndrome [Unknown]
  - Blood glucose increased [Unknown]
  - Overdose [Unknown]
